FAERS Safety Report 4283452-X (Version None)
Quarter: 2004Q1

REPORT INFORMATION
  Report Type: 
  Country: None (occurrence: None)
  Receive Date: 20040121
  Receipt Date: 20030114
  Transmission Date: 20041129
  Serious: Yes (Other)
  Sender: FDA-Public Use
  Company Number: A03200300085

PATIENT
  Age: 78 Year
  Sex: Female

DRUGS (4)
  1. PLAVIX [Suspect]
     Indication: MYOCARDIAL INFARCTION
     Dosage: 300 MG ONCE FOLLOWED BY 75 MG/DAY - ORAL
     Route: 048
     Dates: start: 20030101
  2. PLAVIX [Suspect]
     Indication: PROPHYLAXIS
     Dosage: 300 MG ONCE FOLLOWED BY 75 MG/DAY - ORAL
     Route: 048
     Dates: start: 20030101
  3. ACETYLSALICYLIC ACID SRT [Concomitant]
  4. BETA BLOCKERS [Concomitant]

REACTIONS (1)
  - PANCYTOPENIA [None]
